FAERS Safety Report 4577232-5 (Version None)
Quarter: 2005Q1

REPORT INFORMATION
  Report Type: 
  Country: None (occurrence: None)
  Receive Date: 20050209
  Receipt Date: 20050126
  Transmission Date: 20050727
  Serious: Yes (Death, Hospitalization)
  Sender: FDA-Public Use
  Company Number: 2004AL000547

PATIENT
  Age: 46 Year
  Sex: Female

DRUGS (8)
  1. CHLORPROMAZINE HYDROCHLORIDE CONCENTRATE [Suspect]
     Dosage: PO
     Route: 048
  2. ATENOLOL [Suspect]
     Dosage: PO
     Route: 048
  3. OPIOID [Suspect]
     Dosage: PO
     Route: 048
  4. BENZODIAZEPINE [Suspect]
     Dosage: PO
     Route: 048
  5. ETHANOL [Suspect]
     Dosage: PO
     Route: 048
  6. ZIPRASIDONE [Concomitant]
  7. FUROSEMIDE [Concomitant]
  8. WARFARIN SODIUM [Concomitant]

REACTIONS (16)
  - ACIDOSIS [None]
  - ALANINE AMINOTRANSFERASE INCREASED [None]
  - ANOXIC ENCEPHALOPATHY [None]
  - ASPARTATE AMINOTRANSFERASE INCREASED [None]
  - BLOOD ALKALINE PHOSPHATASE INCREASED [None]
  - BRAIN DEATH [None]
  - CARDIO-RESPIRATORY ARREST [None]
  - COMA [None]
  - GENERAL PHYSICAL HEALTH DETERIORATION [None]
  - HYPOTENSION [None]
  - HYPOXIA [None]
  - INTERNATIONAL NORMALISED RATIO INCREASED [None]
  - LOSS OF CONSCIOUSNESS [None]
  - MULTIPLE DRUG OVERDOSE [None]
  - PUPIL FIXED [None]
  - TROPONIN INCREASED [None]
